FAERS Safety Report 11544021 (Version 3)
Quarter: 2017Q3

REPORT INFORMATION
  Report Type: Spontaneous
  Country: US (occurrence: US)
  Receive Date: 20150924
  Receipt Date: 20170914
  Transmission Date: 20171127
  Serious: Yes (Death, Hospitalization, Other)
  Sender: FDA-Public Use
  Company Number: US-ASTRAZENECA-2015SE91589

PATIENT
  Age: 746 Month
  Sex: Male
  Weight: 66.2 kg

DRUGS (32)
  1. FARXIGA [Suspect]
     Active Substance: DAPAGLIFLOZIN PROPANEDIOL
     Indication: TYPE 2 DIABETES MELLITUS
     Route: 048
     Dates: start: 20141022
  2. LORAZEPAM. [Concomitant]
     Active Substance: LORAZEPAM
     Route: 048
     Dates: start: 20150126
  3. METOPROLOL TARTRATE. [Concomitant]
     Active Substance: METOPROLOL TARTRATE
     Dosage: 0.5 TABLET ORAL TWICE A DAY
     Route: 048
     Dates: start: 20150419
  4. PANTOPRAZOLE [Concomitant]
     Active Substance: PANTOPRAZOLE
     Dosage: 40.0MG UNKNOWN
     Route: 048
     Dates: start: 20150421
  5. BYDUREON [Suspect]
     Active Substance: EXENATIDE
     Indication: TYPE 2 DIABETES MELLITUS
     Route: 058
     Dates: start: 20140828
  6. SENOKOT [Concomitant]
     Active Substance: SENNOSIDES
     Dosage: 187.0MG UNKNOWN
     Route: 048
     Dates: start: 20150420
  7. LIDOCAINE. [Concomitant]
     Active Substance: LIDOCAINE
     Dosage: 2% JELLY
     Dates: start: 20150428
  8. ACETAMINOPHEN. [Concomitant]
     Active Substance: ACETAMINOPHEN
     Indication: PAIN
     Dosage: 2 TABLET ORAL EVERY FOUR HOURS PRN
     Route: 048
     Dates: start: 20150419
  9. HUMULIN R [Concomitant]
     Active Substance: INSULIN HUMAN
     Dosage: 100 UNIT
     Dates: start: 20150416
  10. DEXMEDETOMIDINE. [Concomitant]
     Active Substance: DEXMEDETOMIDINE
     Dosage: 400MCG PREMIX 1 OOML IV INFUSION TITRATE
     Dates: start: 20150420
  11. GLYBURIDE. [Concomitant]
     Active Substance: GLYBURIDE
     Dosage: 1 TABLET ORAL DAILY WITH BREAKFAST
     Route: 048
     Dates: start: 20150419
  12. BACITRACIN ZINC. [Concomitant]
     Active Substance: BACITRACIN ZINC
     Dosage: 500 UNIT/GRAM OINTMENT, 1 APPLICATION TOPICAL THREE TIMES A DAY
     Dates: start: 20150419
  13. LACOSAMIDE. [Concomitant]
     Active Substance: LACOSAMIDE
     Dosage: 100 MG/10 ML QBAG IV SODIUM CHLORIDE 0.9 0.9 50 ML IV, EVERY 12 HOURS
     Dates: start: 20150418
  14. FARXIGA [Suspect]
     Active Substance: DAPAGLIFLOZIN PROPANEDIOL
     Indication: TYPE 2 DIABETES MELLITUS
     Dosage: 10.0MG UNKNOWN
     Route: 048
     Dates: start: 20141202
  15. VICTOZA [Concomitant]
     Active Substance: LIRAGLUTIDE
     Indication: DIABETES MELLITUS
     Dosage: 18 MG/3 ML, INJECT 0.6 MG SUBCUTANEOUSLY ONCE DAILY
     Dates: start: 20140910
  16. LISINOPRIL. [Concomitant]
     Active Substance: LISINOPRIL
     Indication: DIABETIC NEPHROPATHY
     Dosage: ONE TABLET BY MOUTH ONCE DAILY
     Route: 048
     Dates: start: 20140828
  17. DOCUSATE SODIUM. [Concomitant]
     Active Substance: DOCUSATE SODIUM
     Dosage: 100 MG GASTROSTOMY (PEG) TWICE A DAY
     Route: 048
     Dates: start: 20150419
  18. VANCOMYCIN [Concomitant]
     Active Substance: VANCOMYCIN
     Dosage: 100 MG GASTROSTOMY (PEG) TWICE A DAY
     Route: 048
     Dates: start: 20150416
  19. CEFTAROLINE FOSAMIL [Concomitant]
     Active Substance: CEFTAROLINE FOSAMIL
     Dosage: 400MG INTRAVENOUS Q12HR
     Dates: start: 20150420
  20. METFORMIN [Concomitant]
     Active Substance: METFORMIN HYDROCHLORIDE
     Indication: DIABETES MELLITUS
     Dosage: 500 MG, TWO TABLETS BY MOUTH TWICE DAILY WITH FOOD.
     Dates: start: 20121105
  21. GABAPENTIN. [Concomitant]
     Active Substance: GABAPENTIN
     Indication: NEUROPATHY PERIPHERAL
     Dosage: TWO CAPSULES BY MOUTH 4 TIMES DAILY FOR 90 DAYS
     Route: 048
     Dates: start: 20140828
  22. GABAPENTIN. [Concomitant]
     Active Substance: GABAPENTIN
     Indication: NEUROPATHY PERIPHERAL
     Dosage: 1 TABLET ORAL THREE TIMES A DAY
     Route: 048
     Dates: start: 20150419
  23. INVOKANA [Concomitant]
     Active Substance: CANAGLIFLOZIN
     Indication: DIABETES MELLITUS
     Dosage: 300 MG
     Dates: start: 20140910
  24. CEFTRIAXONE. [Concomitant]
     Active Substance: CEFTRIAXONE
     Dosage: 2 GM
     Dates: start: 20150416
  25. METFORMIN [Concomitant]
     Active Substance: METFORMIN HYDROCHLORIDE
     Indication: DIABETES MELLITUS
     Dosage: 1000 MG, TAKE ONE TABLET BY MOUTH TWICW DAILY
     Route: 048
     Dates: start: 20150107
  26. HYDROCODONE BITARTRATE AND ACETAMINOPHEN [Concomitant]
     Active Substance: ACETAMINOPHEN\HYDROCODONE BITARTRATE
     Dosage: 5-325 MG
     Route: 048
     Dates: start: 20150126
  27. JANUVIA [Concomitant]
     Active Substance: SITAGLIPTIN PHOSPHATE
     Indication: DIABETES MELLITUS
     Dosage: TAKE ONE TABLET BY MOUTH ONCE DAILY.
     Route: 048
     Dates: start: 20140827
  28. GLUCOTROL [Concomitant]
     Active Substance: GLIPIZIDE
     Indication: DIABETES MELLITUS
  29. TAMSULOSIN [Concomitant]
     Active Substance: TAMSULOSIN
     Dosage: EXTENDED RELEASE 24HR, 2 CAPSULE ORAL DAILY
     Route: 048
     Dates: start: 20150419
  30. ACYCLOVIR. [Concomitant]
     Active Substance: ACYCLOVIR
     Dosage: 100 MG GASTROSTOMY (PEG) TWICE A DAY
     Route: 048
     Dates: start: 20150416
  31. MICONAZOLE. [Concomitant]
     Active Substance: MICONAZOLE
     Dosage: 2% TOP POWDER
     Dates: start: 20150428
  32. FARXIGA [Suspect]
     Active Substance: DAPAGLIFLOZIN PROPANEDIOL
     Indication: TYPE 2 DIABETES MELLITUS
     Route: 048
     Dates: start: 201410

REACTIONS (11)
  - Treatment noncompliance [Unknown]
  - Diabetic ketoacidosis [Unknown]
  - Diabetic neuropathy [Unknown]
  - Renal injury [Unknown]
  - Acute kidney injury [Not Recovered/Not Resolved]
  - Urinary tract infection [Unknown]
  - Diabetic coma [Unknown]
  - Pancreatitis [Unknown]
  - Circumstance or information capable of leading to medication error [Unknown]
  - Blindness [Unknown]
  - Renal failure [Fatal]

NARRATIVE: CASE EVENT DATE: 201504
